FAERS Safety Report 18257327 (Version 1)
Quarter: 2020Q3

REPORT INFORMATION
  Report Type: Spontaneous
  Country: US (occurrence: US)
  Receive Date: 20200505
  Receipt Date: 20200505
  Transmission Date: 20201103
  Serious: No
  Sender: FDA-Public Use
  Company Number: None

PATIENT
  Age: 46 Year
  Sex: Female

DRUGS (3)
  1. LOPINAVIR?RITONAVIR [Suspect]
     Active Substance: LOPINAVIR\RITONAVIR
  2. ARBIDOL [Suspect]
     Active Substance: UMIFENOVIR
     Indication: COVID-19
  3. INTERFERON ALFA?2B [Suspect]
     Active Substance: INTERFERON ALFA-2B
     Route: 055

REACTIONS (2)
  - Product use in unapproved indication [None]
  - Product use issue [None]
